FAERS Safety Report 10018663 (Version 1)
Quarter: 2014Q1

REPORT INFORMATION
  Report Type: Spontaneous
  Country: GR (occurrence: GR)
  Receive Date: 20140318
  Receipt Date: 20140318
  Transmission Date: 20141002
  Serious: Yes (Hospitalization)
  Sender: FDA-Public Use
  Company Number: GR-SA-2014SA028311

PATIENT
  Age: 85 Year
  Sex: Male

DRUGS (6)
  1. LASIX [Suspect]
     Indication: JOINT SWELLING
     Route: 065
  2. LASIX [Suspect]
     Indication: JOINT SWELLING
     Route: 065
  3. PRADIF T [Suspect]
     Indication: PRODUCT USED FOR UNKNOWN INDICATION
     Route: 065
  4. ALL OTHER THERAPEUTIC PRODUCTS [Suspect]
     Indication: PROSTATIC DISORDER
     Route: 065
  5. DIOVAN [Suspect]
     Indication: PRODUCT USED FOR UNKNOWN INDICATION
     Route: 065
  6. CARVEDILOL [Suspect]
     Indication: PRODUCT USED FOR UNKNOWN INDICATION
     Route: 065

REACTIONS (6)
  - Pneumonia [Unknown]
  - Pyrexia [Unknown]
  - Gait disturbance [Unknown]
  - Urinary tract infection [Unknown]
  - Joint swelling [Unknown]
  - Drug ineffective [Unknown]
